FAERS Safety Report 4504489-9 (Version None)
Quarter: 2004Q4

REPORT INFORMATION
  Report Type: 
  Country: None (occurrence: None)
  Receive Date: 20041116
  Receipt Date: 20041105
  Transmission Date: 20050328
  Serious: Yes (Death, Hospitalization)
  Sender: FDA-Public Use
  Company Number: STA-AE-04-MTX-551

PATIENT
  Age: 71 Year
  Sex: Female

DRUGS (4)
  1. METHOTREXATE [Suspect]
     Indication: RHEUMATOID ARTHRITIS
     Dosage: 15 MG 1X PER 1 WK, ORAL
     Route: 048
     Dates: start: 20000801, end: 20040511
  2. PREDNISONE [Suspect]
     Dosage: 5 MG 1X PER 1 DAY, ORAL
     Route: 048
     Dates: start: 19900101, end: 20040511
  3. ADVIL [Concomitant]
  4. VICODIN [Concomitant]

REACTIONS (4)
  - GENERAL PHYSICAL HEALTH DETERIORATION [None]
  - HYPOXIA [None]
  - LUNG INFILTRATION [None]
  - PNEUMONITIS [None]
